FAERS Safety Report 9909598 (Version 3)
Quarter: 2014Q2

REPORT INFORMATION
  Report Type: Spontaneous
  Country: US (occurrence: US)
  Receive Date: 20140219
  Receipt Date: 20140430
  Transmission Date: 20141212
  Serious: Yes (Hospitalization)
  Sender: FDA-Public Use
  Company Number: US-GLAXOSMITHKLINE-A0910216A

PATIENT
  Age: 59 Year
  Sex: Male

DRUGS (20)
  1. IMITREX [Suspect]
     Indication: MIGRAINE
     Dosage: 50MG AS REQUIRED
     Route: 048
  2. SERTRALINE [Suspect]
     Indication: PRODUCT USED FOR UNKNOWN INDICATION
     Route: 065
  3. SEROQUEL [Suspect]
     Indication: PRODUCT USED FOR UNKNOWN INDICATION
     Route: 065
  4. LOVAZA [Suspect]
     Indication: CARDIAC DISORDER
     Dosage: 2G TWICE PER DAY
     Route: 048
  5. WELLBUTRIN SR [Suspect]
     Indication: BIPOLAR DISORDER
     Dosage: 150MG PER DAY
     Route: 048
  6. PERCOCET [Concomitant]
  7. XANAX [Concomitant]
  8. LIPITOR [Concomitant]
  9. PLAVIX [Concomitant]
  10. LOPRESSOR [Concomitant]
  11. K-DUR [Concomitant]
  12. LYRICA [Concomitant]
  13. SCOPOLAMINE [Concomitant]
  14. AMBIEN [Concomitant]
  15. UNSPECIFIED MEDICATION [Concomitant]
  16. MECLIZINE [Concomitant]
  17. DEXILANT [Concomitant]
  18. LOSARTAN [Concomitant]
  19. MS CONTIN [Concomitant]
  20. OXYCODONE [Concomitant]

REACTIONS (12)
  - Myocardial infarction [Unknown]
  - Arterial occlusive disease [Unknown]
  - Heart rate irregular [Unknown]
  - Implantable defibrillator insertion [Unknown]
  - Device malfunction [Unknown]
  - Catheterisation cardiac [Unknown]
  - Coronary artery bypass [Unknown]
  - Pneumonia [Recovered/Resolved]
  - Staphylococcal infection [Not Recovered/Not Resolved]
  - Lower respiratory tract infection [Recovered/Resolved]
  - Pneumonia staphylococcal [Recovered/Resolved]
  - Immunodeficiency [Unknown]
